FAERS Safety Report 6970719-7 (Version None)
Quarter: 2010Q3

REPORT INFORMATION
  Report Type: 
  Country: None (occurrence: None)
  Receive Date: 20100824
  Receipt Date: 20090916
  Transmission Date: 20110219
  Serious: Yes (Other)
  Sender: FDA-Public Use
  Company Number: 2009270783

PATIENT
  Sex: Female
  Weight: 52.6 kg

DRUGS (2)
  1. NORVASC [Suspect]
     Indication: HYPERTENSION
     Dosage: 2.5 MG, 1X/DAY, ORAL
     Route: 048
     Dates: start: 20090101
  2. AMOXICILLIN [Concomitant]

REACTIONS (6)
  - BREAST PAIN [None]
  - CHEST PAIN [None]
  - NOCTURIA [None]
  - RENAL DISORDER [None]
  - STRESS [None]
  - SYNOVITIS [None]
